FAERS Safety Report 20024307 (Version 5)
Quarter: 2023Q1

REPORT INFORMATION
  Report Type: Spontaneous
  Country: US (occurrence: US)
  Receive Date: 20211102
  Receipt Date: 20230215
  Transmission Date: 20230417
  Serious: No
  Sender: FDA-Public Use
  Company Number: US-BIOGEN-2021BI01035789

PATIENT
  Sex: Male

DRUGS (7)
  1. TECFIDERA [Suspect]
     Active Substance: DIMETHYL FUMARATE
     Indication: Multiple sclerosis
     Route: 050
     Dates: start: 20141003, end: 20210131
  2. FOLIC ACID [Concomitant]
     Active Substance: FOLIC ACID
     Route: 050
  3. VITAMIN B12 [Concomitant]
     Active Substance: CYANOCOBALAMIN
     Route: 050
  4. LUTEIN [Concomitant]
     Active Substance: LUTEIN
     Route: 050
  5. LYSINE [Concomitant]
     Active Substance: LYSINE
     Route: 050
  6. VITAMIN D3 [Concomitant]
     Active Substance: CHOLECALCIFEROL
     Route: 050
  7. POTASSIUM GLUCONATE [Concomitant]
     Active Substance: POTASSIUM GLUCONATE
     Route: 050

REACTIONS (5)
  - Product dose omission issue [Unknown]
  - White blood cell count decreased [Unknown]
  - Abdominal pain upper [Unknown]
  - Hot flush [Unknown]
  - Lymphocyte count decreased [Recovered/Resolved]
